FAERS Safety Report 4791864-0 (Version None)
Quarter: 2005Q4

REPORT INFORMATION
  Report Type: 
  Country: None (occurrence: None)
  Receive Date: 20051005
  Receipt Date: 20050922
  Transmission Date: 20060501
  Serious: Yes (Disabling)
  Sender: FDA-Public Use
  Company Number: 2005132687

PATIENT
  Age: 72 Year
  Sex: Female

DRUGS (1)
  1. XALATAN [Suspect]
     Indication: GLAUCOMA
     Dosage: 2 DROPS DAILY (2 IN 1 D), OPHTHALMIC
     Route: 047
     Dates: start: 20020107

REACTIONS (3)
  - ACCIDENT [None]
  - FALL [None]
  - UPPER LIMB FRACTURE [None]
